FAERS Safety Report 8772815 (Version 1)
Quarter: 2012Q4

REPORT INFORMATION
  Report Type: 
  Country: JP (occurrence: JP)
  Receive Date: 20120907
  Receipt Date: 20120907
  Transmission Date: 20130627
  Serious: Yes (Other)
  Sender: FDA-Public Use
  Company Number: JP-PFIZER INC-2012213179

PATIENT
  Age: 74 Year
  Sex: Male

DRUGS (1)
  1. DETRUSITOL [Suspect]
     Indication: INCONTINENCE
     Dosage: 4 mg, daily
     Route: 048
     Dates: start: 20120809, end: 20120813

REACTIONS (2)
  - Hyperthermia [Recovered/Resolved]
  - White blood cell count increased [Recovered/Resolved]
